FAERS Safety Report 14536587 (Version 1)
Quarter: 2018Q1

REPORT INFORMATION
  Report Type: Spontaneous
  Country: FR (occurrence: FR)
  Receive Date: 20180215
  Receipt Date: 20180215
  Transmission Date: 20180509
  Serious: Yes (Hospitalization)
  Sender: FDA-Public Use
  Company Number: FR-B.I. PHARMACEUTICALS,INC./RIDGEFIELD-2018-12-000453

PATIENT
  Age: 40 Year
  Sex: Male
  Weight: 77 kg

DRUGS (2)
  1. CATAPRESSAN [Suspect]
     Active Substance: CLONIDINE
     Indication: ANXIETY
     Route: 048
     Dates: start: 20171211, end: 20171211
  2. TERCIAN [Suspect]
     Active Substance: CYAMEMAZINE
     Indication: ANXIETY
     Route: 048
     Dates: start: 20171211, end: 20171212

REACTIONS (2)
  - Hypotension [Not Recovered/Not Resolved]
  - Bradycardia [Not Recovered/Not Resolved]

NARRATIVE: CASE EVENT DATE: 20171211
